FAERS Safety Report 6389672-2 (Version None)
Quarter: 2009Q4

REPORT INFORMATION
  Report Type: 
  Country: None (occurrence: None)
  Receive Date: 20091002
  Receipt Date: 20091002
  Transmission Date: 20100525
  Serious: Yes (Hospitalization)
  Sender: FDA-Public Use
  Company Number: None

PATIENT
  Age: 89 Year
  Sex: Male

DRUGS (1)
  1. WARFARIN SODIUM [Suspect]
     Indication: ATRIAL FIBRILLATION
     Dosage: 2.5 TO 5 MG EVERY DAY PO
     Route: 048
     Dates: start: 20080901, end: 20090427

REACTIONS (2)
  - HAEMATOMA [None]
  - OEDEMA PERIPHERAL [None]
